FAERS Safety Report 6187757-7 (Version None)
Quarter: 2009Q2

REPORT INFORMATION
  Report Type: 
  Country: None (occurrence: None)
  Receive Date: 20090511
  Receipt Date: 20090511
  Transmission Date: 20091009
  Serious: No
  Sender: FDA-Public Use
  Company Number: None

PATIENT
  Sex: Male
  Weight: 126.1 kg

DRUGS (1)
  1. CIPROFLOXACIN HCL [Suspect]
     Indication: KIDNEY INFECTION
     Dosage: 250 MG 1 TAB TWICE A DAY
     Dates: start: 20090324, end: 20090331

REACTIONS (3)
  - PAIN [None]
  - PAIN IN JAW [None]
  - RESTLESSNESS [None]
